FAERS Safety Report 6022061-9 (Version None)
Quarter: 2008Q4

REPORT INFORMATION
  Report Type: 
  Country: None (occurrence: None)
  Receive Date: 20081223
  Receipt Date: 20081208
  Transmission Date: 20090506
  Serious: Yes (Hospitalization)
  Sender: FDA-Public Use
  Company Number: KV200801015

PATIENT
  Age: 71 Year
  Sex: Female
  Weight: 48.1 kg

DRUGS (10)
  1. PROPAFENONE HCL [Suspect]
     Indication: HEART RATE IRREGULAR
     Dosage: 225 MG, TID, ORAL
     Route: 048
     Dates: start: 20030101
  2. ISOSORBIDE MONONITRATE [Concomitant]
     Indication: HEART RATE IRREGULAR
     Dosage: 30 MG, QD, ORAL
     Route: 048
     Dates: start: 20080501
  3. DIGOXIN [Concomitant]
  4. METOPROLOL TARTRATE [Concomitant]
  5. LASIX [Concomitant]
  6. PRILOSEC /00661201/ (OMEPRAZOLE) [Concomitant]
  7. SYNTHROID [Concomitant]
  8. LISINOPRIL [Concomitant]
  9. ALDACTONE [Concomitant]
  10. ALPRAZOLAM [Concomitant]

REACTIONS (5)
  - ASTHENIA [None]
  - CHEST PAIN [None]
  - FATIGUE [None]
  - LABORATORY TEST ABNORMAL [None]
  - PRODUCT QUALITY ISSUE [None]
